FAERS Safety Report 10083697 (Version 1)
Quarter: 2014Q2

REPORT INFORMATION
  Report Type: Spontaneous
  Country: IT (occurrence: None)
  Receive Date: 20140415
  Receipt Date: 20140415
  Transmission Date: 20141212
  Serious: Yes (Hospitalization)
  Sender: FDA-Public Use
  Company Number: 2014AP002569

PATIENT
  Age: 82 Year
  Sex: Female
  Weight: 60 kg

DRUGS (3)
  1. LEVOFLOXACIN [Suspect]
     Indication: INFECTION
     Dates: start: 20140122, end: 20140130
  2. NEO-LOTAN PLUS (HYDROCHLOROTHIAZIDE, LOSARTAN POTASSIUM) [Concomitant]
  3. FEMARA (LETROZOLE) [Concomitant]

REACTIONS (3)
  - Hyperpyrexia [None]
  - Dermatitis allergic [None]
  - Toxicity to various agents [None]
